FAERS Safety Report 6376629-0 (Version None)
Quarter: 2009Q3

REPORT INFORMATION
  Report Type: 
  Country: None (occurrence: None)
  Receive Date: 20090925
  Receipt Date: 20090917
  Transmission Date: 20100115
  Serious: Yes (Other)
  Sender: FDA-Public Use
  Company Number: AU-ROCHE-461303

PATIENT
  Sex: Female
  Weight: 59 kg

DRUGS (1)
  1. ROACCUTANE [Suspect]
     Route: 048
     Dates: start: 20060322, end: 20060828

REACTIONS (1)
  - ABORTION SPONTANEOUS [None]
